FAERS Safety Report 8397275-3 (Version None)
Quarter: 2012Q2

REPORT INFORMATION
  Report Type: 
  Country: None (occurrence: None)
  Receive Date: 20120531
  Receipt Date: 20120521
  Transmission Date: 20120825
  Serious: Yes (Other)
  Sender: FDA-Public Use
  Company Number: US-BIOGENIDEC-2007BI010355

PATIENT
  Age: 48 Year
  Sex: Female

DRUGS (11)
  1. TYSABRI [Suspect]
     Route: 042
     Dates: start: 20100802
  2. WELLBUTRIN [Concomitant]
  3. TYSABRI [Suspect]
     Route: 042
     Dates: start: 20061107, end: 20070410
  4. TYSABRI [Suspect]
     Route: 042
     Dates: start: 20071204, end: 20081208
  5. TYSABRI [Suspect]
     Route: 042
     Dates: start: 20100802
  6. AMANTADINE HCL [Concomitant]
  7. IMIPRAMINE [Concomitant]
  8. TYSABRI [Suspect]
     Route: 042
     Dates: start: 20071204, end: 20081208
  9. AMBIEN [Concomitant]
  10. TYSABRI [Suspect]
     Indication: MULTIPLE SCLEROSIS
     Route: 042
     Dates: start: 20061107, end: 20070410
  11. MOTRIN [Concomitant]

REACTIONS (12)
  - DYSGRAPHIA [None]
  - PARAESTHESIA [None]
  - DYSARTHRIA [None]
  - COLORECTAL CANCER METASTATIC [None]
  - HYPOAESTHESIA [None]
  - BLOOD IRON DECREASED [None]
  - URETERIC CANCER METASTATIC [None]
  - HAEMATOCHEZIA [None]
  - ARTHROPATHY [None]
  - BALANCE DISORDER [None]
  - MULTIPLE SCLEROSIS [None]
  - MUSCULOSKELETAL STIFFNESS [None]
